FAERS Safety Report 6345914-0 (Version None)
Quarter: 2009Q3

REPORT INFORMATION
  Report Type: 
  Country: None (occurrence: None)
  Receive Date: 20090909
  Receipt Date: 20090903
  Transmission Date: 20100115
  Serious: Yes (Other)
  Sender: FDA-Public Use
  Company Number: A0806377A

PATIENT
  Sex: Male
  Weight: 12 kg

DRUGS (4)
  1. ZINNAT [Suspect]
     Indication: BRONCHOPNEUMONIA
     Route: 048
     Dates: start: 20090831, end: 20090903
  2. DEPAKENE [Concomitant]
     Dates: start: 20090201
  3. BEROTEC [Concomitant]
     Dosage: 2DROP TWICE PER DAY
     Dates: start: 20090820
  4. ATROVENT [Concomitant]
     Dosage: 6DROP TWICE PER DAY
     Dates: start: 20090820

REACTIONS (2)
  - DIARRHOEA [None]
  - GASTROINTESTINAL HAEMORRHAGE [None]
